FAERS Safety Report 13977405 (Version 3)
Quarter: 2017Q4

REPORT INFORMATION
  Report Type: Report from Study
  Country: DE (occurrence: DE)
  Receive Date: 20170915
  Receipt Date: 20171016
  Transmission Date: 20180321
  Serious: Yes (Other)
  Sender: FDA-Public Use
  Company Number: PHHY2017DE135822

PATIENT
  Sex: Female

DRUGS (11)
  1. TASIGNA [Suspect]
     Active Substance: NILOTINIB
     Indication: CHRONIC MYELOID LEUKAEMIA
     Dosage: 600 MG, QD
     Route: 048
     Dates: start: 20161124, end: 20161223
  2. TASIGNA [Suspect]
     Active Substance: NILOTINIB
     Dosage: 400 MG, QD
     Route: 048
     Dates: start: 20170210, end: 20170817
  3. TASIGNA [Suspect]
     Active Substance: NILOTINIB
     Dosage: 300 MG, QD
     Route: 048
     Dates: start: 20161224, end: 20170112
  4. TASIGNA [Suspect]
     Active Substance: NILOTINIB
     Dosage: 400 MG, QD
     Route: 048
     Dates: start: 20170831, end: 20170920
  5. ESCITALOPRAM [Concomitant]
     Active Substance: ESCITALOPRAM OXALATE
     Indication: DEPRESSION
     Dosage: 5 MG, QD
     Route: 065
     Dates: start: 20160701, end: 20161220
  6. PREDNISON [Concomitant]
     Active Substance: PREDNISONE
     Indication: RASH PRURITIC
     Dosage: 20 MG, QD
     Route: 065
     Dates: start: 20170817, end: 20170821
  7. TASIGNA [Suspect]
     Active Substance: NILOTINIB
     Dosage: 300 MG, QD
     Route: 048
     Dates: start: 20170921
  8. NOVALGIN [Concomitant]
     Active Substance: METAMIZOLE SODIUM
     Indication: NECK PAIN
     Dosage: 20 DRP, BID
     Route: 065
     Dates: start: 20170707, end: 20170709
  9. TASIGNA [Suspect]
     Active Substance: NILOTINIB
     Dosage: 600 MG, QD
     Route: 048
     Dates: start: 20170113, end: 20170209
  10. IBUPROFEN. [Concomitant]
     Active Substance: IBUPROFEN
     Indication: NECK PAIN
     Dosage: 1200 DF, QD
     Route: 065
     Dates: start: 20170707, end: 20170714
  11. PREDNICARBATE. [Concomitant]
     Active Substance: PREDNICARBATE
     Indication: SKIN DISORDER
     Dosage: UNK UNK, PRN
     Route: 065
     Dates: start: 20161222, end: 20170105

REACTIONS (2)
  - Haematotoxicity [Unknown]
  - Thrombocytopenia [Recovered/Resolved]

NARRATIVE: CASE EVENT DATE: 20170727
